FAERS Safety Report 16090116 (Version 1)
Quarter: 2019Q1

REPORT INFORMATION
  Report Type: Spontaneous
  Country: US (occurrence: US)
  Receive Date: 20190319
  Receipt Date: 20190319
  Transmission Date: 20190418
  Serious: No
  Sender: FDA-Public Use
  Company Number: US-SA-2019SA073038

PATIENT
  Age: 72 Year
  Sex: Female

DRUGS (2)
  1. TOUJEO [Suspect]
     Active Substance: INSULIN GLARGINE
     Indication: TYPE 2 DIABETES MELLITUS
     Dosage: 10 U, QD
  2. HUMALOG [Suspect]
     Active Substance: INSULIN LISPRO
     Dosage: THE DOCTOR TOLD HER TO INCREASE HER HUMALOG DOSE BY 4-5 UNITS

REACTIONS (1)
  - Blood glucose increased [Unknown]
